FAERS Safety Report 6983935-5 (Version None)
Quarter: 2010Q3

REPORT INFORMATION
  Report Type: 
  Country: None (occurrence: None)
  Receive Date: 20100914
  Receipt Date: 20090415
  Transmission Date: 20110219
  Serious: No
  Sender: FDA-Public Use
  Company Number: US-WYE-H08978609

PATIENT
  Sex: Male

DRUGS (7)
  1. ADVIL PM [Suspect]
     Dosage: 1 CAPLET PER DAY
     Dates: start: 20090301
  2. PREDNISONE [Concomitant]
  3. ACETYLSALICYLIC ACID [Concomitant]
  4. LIPITOR [Concomitant]
  5. UNITHROID [Concomitant]
  6. HYDROXYCHLOROQUINE [Concomitant]
  7. FOLIC ACID [Concomitant]

REACTIONS (1)
  - SYNCOPE [None]
